FAERS Safety Report 4520966-9 (Version None)
Quarter: 2004Q4

REPORT INFORMATION
  Report Type: 
  Country: None (occurrence: None)
  Receive Date: 20041206
  Receipt Date: 20041201
  Transmission Date: 20050328
  Serious: Yes (Other)
  Sender: FDA-Public Use
  Company Number: 2004-12-0022

PATIENT
  Age: 54 Year
  Sex: Male

DRUGS (2)
  1. PEG-INTRON [Suspect]
     Indication: HEPATITIS C
     Dosage: 1.5 MCG/KG QW SUBCUTANEOUS
     Route: 058
     Dates: start: 20021101, end: 20031101
  2. REBETOL [Suspect]
     Indication: HEPATITIS C
     Dosage: 1000 MG QD ORAL
     Route: 048
     Dates: start: 20021101, end: 20031101

REACTIONS (4)
  - OSTEOPOROSIS [None]
  - PAIN [None]
  - SPINAL COMPRESSION FRACTURE [None]
  - SPINAL OSTEOARTHRITIS [None]
